FAERS Safety Report 9023450 (Version 3)
Quarter: 2013Q1

REPORT INFORMATION
  Report Type: Spontaneous
  Country: US (occurrence: US)
  Receive Date: 20130121
  Receipt Date: 20130213
  Transmission Date: 20140127
  Serious: Yes (Hospitalization, Other)
  Sender: FDA-Public Use
  Company Number: US-BAXTER-2012BAX027549

PATIENT
  Sex: Female

DRUGS (2)
  1. DIANEAL LOW CALCIUM [Suspect]
     Indication: PERITONEAL DIALYSIS
     Route: 033
     Dates: start: 20120810
  2. PREDNISONE [Suspect]
     Indication: SARCOIDOSIS
     Route: 048

REACTIONS (5)
  - Pneumonia [Recovered/Resolved]
  - Gastritis [Unknown]
  - Sarcoidosis [Unknown]
  - Peritonitis [Recovered/Resolved]
  - Peritoneal dialysis complication [Recovered/Resolved]
